FAERS Safety Report 10193356 (Version 1)
Quarter: 2014Q2

REPORT INFORMATION
  Report Type: Spontaneous
  Country: US (occurrence: US)
  Receive Date: 20140524
  Receipt Date: 20140524
  Transmission Date: 20141212
  Serious: No
  Sender: FDA-Public Use
  Company Number: US-SA-2013SA112997

PATIENT
  Age: 76 Year
  Sex: Female

DRUGS (2)
  1. SOLOSTAR [Suspect]
     Dosage: TAKEN FROM- 4 TO 5 MONTHS
  2. LANTUS SOLOSTAR [Suspect]
     Dosage: TAKEN FROM-4 TO 5 MONTHS DOSE:42 UNIT(S)
     Route: 051

REACTIONS (1)
  - Malaise [Unknown]
